FAERS Safety Report 5549944-8 (Version None)
Quarter: 2007Q4

REPORT INFORMATION
  Report Type: 
  Country: None (occurrence: None)
  Receive Date: 20071210
  Receipt Date: 20071129
  Transmission Date: 20080405
  Serious: Yes (Hospitalization, Other)
  Sender: FDA-Public Use
  Company Number: 021399

PATIENT
  Age: 73 Year
  Sex: Male
  Weight: 62.1 kg

DRUGS (1)
  1. AMIODARONE HCL [Suspect]
     Indication: VENTRICULAR TACHYCARDIA
     Dosage: 1 TABLET,QD,ORAL
     Route: 048
     Dates: start: 20050101, end: 20071120

REACTIONS (4)
  - ASTHENIA [None]
  - CARDIAC FAILURE [None]
  - INTERSTITIAL LUNG DISEASE [None]
  - PNEUMONIA [None]
